FAERS Safety Report 17681938 (Version 1)
Quarter: 2020Q2

REPORT INFORMATION
  Report Type: Report from Study
  Country: None (occurrence: CA)
  Receive Date: 20200418
  Receipt Date: 20200418
  Transmission Date: 20200714
  Serious: Yes (Other)
  Sender: FDA-Public Use
  Company Number: CA-ABBVIE-20K-028-3368910-00

PATIENT
  Sex: Male

DRUGS (1)
  1. HUMIRA [Suspect]
     Active Substance: ADALIMUMAB
     Indication: PSORIATIC ARTHROPATHY
     Route: 058
     Dates: start: 20190104

REACTIONS (7)
  - Cerebral disorder [Not Recovered/Not Resolved]
  - Hepatic failure [Unknown]
  - Malaise [Not Recovered/Not Resolved]
  - Ammonia increased [Not Recovered/Not Resolved]
  - Intestinal obstruction [Unknown]
  - Speech disorder [Unknown]
  - Confusional state [Not Recovered/Not Resolved]

NARRATIVE: CASE EVENT DATE: 2020
